FAERS Safety Report 7834233-9 (Version None)
Quarter: 2011Q4

REPORT INFORMATION
  Report Type: 
  Country: None (occurrence: None)
  Receive Date: 20111024
  Receipt Date: 20111018
  Transmission Date: 20120403
  Serious: Yes (Other)
  Sender: FDA-Public Use
  Company Number: PHEH2004US06066

PATIENT
  Sex: Female
  Weight: 68.027 kg

DRUGS (7)
  1. ESTRADERM [Suspect]
     Indication: MENOPAUSE
     Dosage: .05 MG, QW2
     Route: 062
     Dates: start: 19990101, end: 20000101
  2. PREMARIN [Suspect]
     Indication: HORMONE REPLACEMENT THERAPY
  3. CYCRIN [Suspect]
     Indication: MENOPAUSE
     Dosage: 2.5 MG, UNK
     Route: 048
     Dates: start: 19990101, end: 20000101
  4. ESTROSTEP [Suspect]
     Indication: MENOPAUSE
     Dosage: UNK
     Route: 062
     Dates: end: 20010101
  5. PREMPRO [Suspect]
     Indication: MENOPAUSE
     Dosage: .625/2.5 MG
     Route: 048
     Dates: start: 20000101, end: 20020101
  6. MEDROXYPROGESTERONE ACETATE [Suspect]
     Indication: MENOPAUSE
  7. PROVERA [Suspect]
     Indication: HORMONE REPLACEMENT THERAPY

REACTIONS (47)
  - DEVICE FAILURE [None]
  - GENERAL PHYSICAL CONDITION ABNORMAL [None]
  - DEFORMITY [None]
  - PELVIC PAIN [None]
  - BLOOD PRESSURE INCREASED [None]
  - HYPOXIA [None]
  - PORTAL HYPERTENSION [None]
  - BREAST CANCER STAGE II [None]
  - HOT FLUSH [None]
  - POLYP [None]
  - HEADACHE [None]
  - SPLENOMEGALY [None]
  - LUNG NEOPLASM [None]
  - HEPATIC CIRRHOSIS [None]
  - OSTEOPENIA [None]
  - MUSCLE SPASMS [None]
  - PNEUMOTHORAX [None]
  - ASCITES [None]
  - DYSPNOEA [None]
  - BREAST NECROSIS [None]
  - ANXIETY [None]
  - INSOMNIA [None]
  - OSTEOARTHRITIS [None]
  - BONE PAIN [None]
  - MUSCULOSKELETAL DISCOMFORT [None]
  - METASTASES TO LIVER [None]
  - DEPRESSION [None]
  - DERMAL CYST [None]
  - RASH [None]
  - INTERVERTEBRAL DISC PROTRUSION [None]
  - CHOLECYSTITIS [None]
  - LEUKOCYTOSIS [None]
  - DIVERTICULUM INTESTINAL [None]
  - BREAST CALCIFICATIONS [None]
  - PAIN [None]
  - UTERINE LEIOMYOMA [None]
  - BACK PAIN [None]
  - ABDOMINAL PAIN [None]
  - ADRENAL MASS [None]
  - IMPAIRED WORK ABILITY [None]
  - MALAISE [None]
  - OVARIAN CYST [None]
  - ARTHRALGIA [None]
  - ATROPHIC VULVOVAGINITIS [None]
  - PNEUMONIA [None]
  - LYMPHADENOPATHY [None]
  - PLEURAL EFFUSION [None]
